FAERS Safety Report 6385717-4 (Version None)
Quarter: 2009Q4

REPORT INFORMATION
  Report Type: 
  Country: None (occurrence: None)
  Receive Date: 20091002
  Receipt Date: 20080926
  Transmission Date: 20100525
  Serious: No
  Sender: FDA-Public Use
  Company Number: US-ASTRAZENECA-2008UW20529

PATIENT
  Age: 61 Year
  Sex: Female
  Weight: 59 kg

DRUGS (3)
  1. ARIMIDEX [Suspect]
     Indication: BREAST CANCER FEMALE
     Route: 048
     Dates: start: 20060401
  2. PRILOSEC [Concomitant]
     Route: 048
  3. ASPIRIN [Concomitant]

REACTIONS (2)
  - ANORECTAL DISCOMFORT [None]
  - VULVOVAGINAL DISCOMFORT [None]
